FAERS Safety Report 13425547 (Version 2)
Quarter: 2017Q2

REPORT INFORMATION
  Report Type: Report from Study
  Country: None (occurrence: US)
  Receive Date: 20170411
  Receipt Date: 20170524
  Transmission Date: 20170830
  Serious: Yes (Other)
  Sender: FDA-Public Use
  Company Number: US-ABBVIE-17K-163-1933087-00

PATIENT
  Sex: Female

DRUGS (1)
  1. HUMIRA [Suspect]
     Active Substance: ADALIMUMAB
     Indication: CROHN^S DISEASE
     Route: 058

REACTIONS (7)
  - Small intestinal obstruction [Unknown]
  - Drug effect decreased [Not Recovered/Not Resolved]
  - Diarrhoea [Unknown]
  - Injection site bruising [Recovered/Resolved]
  - Abdominal adhesions [Unknown]
  - Defaecation urgency [Not Recovered/Not Resolved]
  - Vitamin D deficiency [Unknown]
